FAERS Safety Report 7609275-9 (Version None)
Quarter: 2011Q3

REPORT INFORMATION
  Report Type: 
  Country: None (occurrence: None)
  Receive Date: 20110714
  Receipt Date: 20110711
  Transmission Date: 20111222
  Serious: Yes (Hospitalization, Other)
  Sender: FDA-Public Use
  Company Number: US-PFIZER INC-2011070785

PATIENT
  Sex: Female

DRUGS (11)
  1. REMERON [Concomitant]
     Indication: DEPRESSION
     Dosage: UNK
     Dates: start: 20070101, end: 20090101
  2. CHANTIX [Suspect]
     Indication: SMOKING CESSATION THERAPY
     Dosage: STARTING PACK AND CONTINUING PACKS
     Dates: start: 20080731, end: 20080925
  3. ATIVAN [Concomitant]
     Indication: ANXIETY
     Dosage: UNK
     Dates: start: 20070101, end: 20110101
  4. RISPERDAL [Concomitant]
     Indication: BIPOLAR DISORDER
     Dosage: UNK
     Dates: start: 20070101
  5. SEROQUEL [Concomitant]
     Indication: DEPRESSION
  6. RISPERDAL [Concomitant]
     Indication: DEPRESSION
  7. RISPERDAL [Concomitant]
     Indication: ANXIETY
  8. SEROQUEL [Concomitant]
     Indication: ANXIETY
  9. CELEXA [Concomitant]
     Indication: DEPRESSION
     Dosage: UNK
     Dates: start: 20070101, end: 20110101
  10. SEROQUEL [Concomitant]
     Indication: BIPOLAR DISORDER
     Dosage: UNK
     Dates: start: 20070101, end: 20090101
  11. TRILEPTAL [Concomitant]
     Indication: ANXIETY
     Dosage: UNK
     Dates: start: 20070101, end: 20090101

REACTIONS (7)
  - ANXIETY [None]
  - DEPRESSION [None]
  - SUICIDE ATTEMPT [None]
  - MENTAL DISORDER [None]
  - INTENTIONAL OVERDOSE [None]
  - AGGRESSION [None]
  - INSOMNIA [None]
